FAERS Safety Report 21882309 (Version 1)
Quarter: 2023Q1

REPORT INFORMATION
  Report Type: Report from Study
  Country: IT (occurrence: IT)
  Receive Date: 20230119
  Receipt Date: 20230119
  Transmission Date: 20230418
  Serious: Yes (Other)
  Sender: FDA-Public Use
  Company Number: None

PATIENT
  Age: 20 Year
  Sex: Female

DRUGS (1)
  1. LEVOFLOXACIN [Suspect]
     Active Substance: LEVOFLOXACIN
     Indication: Cystitis
     Dates: start: 20221123, end: 20221123

REACTIONS (2)
  - Skin oedema [Recovering/Resolving]
  - Palatal oedema [Recovering/Resolving]

NARRATIVE: CASE EVENT DATE: 20221123
